FAERS Safety Report 6968959-6 (Version None)
Quarter: 2010Q3

REPORT INFORMATION
  Report Type: 
  Country: None (occurrence: None)
  Receive Date: 20100902
  Receipt Date: 20100624
  Transmission Date: 20110219
  Serious: Yes (Disabling)
  Sender: FDA-Public Use
  Company Number: APP200900437

PATIENT
  Age: 30 Year
  Sex: Female
  Weight: 145.151 kg

DRUGS (6)
  1. SENSORCAINE [Suspect]
     Indication: MUSCULOSKELETAL PAIN
     Dosage: 270 ML, CONTINUOUS VIA PUMP, INTRA-ARTICULAR
     Route: 014
     Dates: start: 20070727
  2. BUPIVACAINE HYDROCHLORIDE AND EPINEPHRINE [Suspect]
     Indication: PRODUCT USED FOR UNKNOWN INDICATION
     Dates: start: 20070727
  3. NAROPIN [Suspect]
     Indication: NERVE BLOCK
     Dosage: 40 ML, RIGHT INTERSCALENE, 40 ML, RIGHT INTERSCALENE
     Dates: start: 20070727
  4. NAROPIN [Suspect]
     Indication: NERVE BLOCK
     Dosage: 40 ML, RIGHT INTERSCALENE, 40 ML, RIGHT INTERSCALENE
     Dates: start: 20070727
  5. STRYKER PAIN PUMP [Suspect]
     Indication: MUSCULOSKELETAL PAIN
     Dates: start: 20070727
  6. ANCEF [Concomitant]

REACTIONS (4)
  - JOINT INJURY [None]
  - MOBILITY DECREASED [None]
  - MUSCULOSKELETAL PAIN [None]
  - ROTATOR CUFF SYNDROME [None]
